FAERS Safety Report 6357939-X (Version None)
Quarter: 2009Q3

REPORT INFORMATION
  Report Type: 
  Country: None (occurrence: None)
  Receive Date: 20090911
  Receipt Date: 20090831
  Transmission Date: 20100115
  Serious: Yes (Death)
  Sender: FDA-Public Use
  Company Number: 2009010148

PATIENT
  Age: 76 Year
  Sex: Male

DRUGS (2)
  1. TREANDA [Suspect]
     Indication: MULTIPLE MYELOMA
     Dosage: INTRAVENOUS
     Route: 042
     Dates: end: 20090701
  2. PLAVIX [Concomitant]

REACTIONS (5)
  - ARRHYTHMIA [None]
  - MYOCARDIAL INFARCTION [None]
  - SUDDEN DEATH [None]
  - TUMOUR LYSIS SYNDROME [None]
  - VENTRICULAR HYPERTROPHY [None]
